FAERS Safety Report 7203465-5 (Version None)
Quarter: 2010Q4

REPORT INFORMATION
  Report Type: 
  Country: None (occurrence: None)
  Receive Date: 20101228
  Receipt Date: 20101228
  Transmission Date: 20110411
  Serious: Yes (Death, Other)
  Sender: FDA-Public Use
  Company Number: None

PATIENT
  Age: 74 Year
  Sex: Male
  Weight: 106 kg

DRUGS (1)
  1. REGADENOSON [Suspect]
     Indication: SURGERY
     Dosage: 0.4 MG ONCE IV
     Route: 042
     Dates: start: 20101216, end: 20101216

REACTIONS (1)
  - WHEEZING [None]
